FAERS Safety Report 18820302 (Version 19)
Quarter: 2022Q2

REPORT INFORMATION
  Report Type: Report from Study
  Country: CA (occurrence: CA)
  Receive Date: 20210202
  Receipt Date: 20220603
  Transmission Date: 20220720
  Serious: Yes (Other)
  Sender: FDA-Public Use
  Company Number: NVSC2019CA058094

PATIENT
  Age: 58 Year
  Sex: Female

DRUGS (3)
  1. SANDOSTATIN LAR DEPOT [Suspect]
     Active Substance: OCTREOTIDE ACETATE
     Indication: Carcinoid tumour
     Dosage: 30 MG, Q4W (EVERY 4 WEEKS)
     Route: 030
     Dates: start: 20140925
  2. SANDOSTATIN LAR DEPOT [Suspect]
     Active Substance: OCTREOTIDE ACETATE
  3. SANDOSTATIN LAR DEPOT [Suspect]
     Active Substance: OCTREOTIDE ACETATE

REACTIONS (18)
  - Haemorrhage [Unknown]
  - Blood pressure increased [Unknown]
  - Metastasis [Unknown]
  - Metastases to liver [Recovering/Resolving]
  - Metastases to uterus [Unknown]
  - Malignant neoplasm progression [Unknown]
  - Metastases to spine [Unknown]
  - Carcinoid tumour [Unknown]
  - Body temperature decreased [Unknown]
  - Vaginal haemorrhage [Recovered/Resolved]
  - Blood pressure systolic increased [Unknown]
  - Blood pressure diastolic decreased [Unknown]
  - Movement disorder [Unknown]
  - Needle issue [Unknown]
  - Mobility decreased [Recovering/Resolving]
  - Asthenia [Unknown]
  - Injection site pain [Recovering/Resolving]
  - Neuroendocrine tumour [Unknown]

NARRATIVE: CASE EVENT DATE: 20191127
